FAERS Safety Report 7417148-X (Version None)
Quarter: 2011Q2

REPORT INFORMATION
  Report Type: 
  Country: None (occurrence: None)
  Receive Date: 20110415
  Receipt Date: 20110207
  Transmission Date: 20111010
  Serious: Yes (Hospitalization, Other)
  Sender: FDA-Public Use
  Company Number: US-BAYER-201026783NA

PATIENT
  Age: 23 Year
  Sex: Female
  Weight: 63.492 kg

DRUGS (5)
  1. YAZ [Suspect]
     Indication: PRODUCT USED FOR UNKNOWN INDICATION
     Dosage: UNK
     Route: 048
     Dates: start: 20040101, end: 20070101
  2. NAPROXEN [Concomitant]
     Dosage: UNK
     Dates: start: 20070101, end: 20080101
  3. YASMIN [Suspect]
     Indication: ORAL CONTRACEPTION
     Dosage: UNK
     Route: 048
     Dates: start: 20040101, end: 20051101
  4. GOLYTELY [Concomitant]
  5. NEXIUM [Concomitant]

REACTIONS (8)
  - GASTRITIS [None]
  - GALLBLADDER DISORDER [None]
  - EPIGASTRIC DISCOMFORT [None]
  - ABDOMINAL PAIN UPPER [None]
  - ABDOMINAL DISTENSION [None]
  - NAUSEA [None]
  - CHOLECYSTITIS CHRONIC [None]
  - BILIARY DYSKINESIA [None]
